FAERS Safety Report 16706353 (Version 5)
Quarter: 2019Q3

REPORT INFORMATION
  Report Type: Spontaneous
  Country: US (occurrence: US)
  Receive Date: 20190815
  Receipt Date: 20190904
  Transmission Date: 20191004
  Serious: No
  Sender: FDA-Public Use
  Company Number: US-PFIZER INC-2019347986

PATIENT
  Age: 62 Year
  Sex: Female
  Weight: 54 kg

DRUGS (2)
  1. IBRANCE [Suspect]
     Active Substance: PALBOCICLIB
     Indication: BREAST CANCER METASTATIC
     Dosage: 125 MG, CYCLIC (DAYS 1-21, 7 DAYS OFF) (D1-21 Q28D )
     Route: 048
     Dates: start: 20190808, end: 20190822
  2. IBRANCE [Suspect]
     Active Substance: PALBOCICLIB
     Dosage: 125 MG, CYCLIC (D1-21 Q28D)
     Route: 048
     Dates: start: 201908

REACTIONS (11)
  - Oropharyngeal pain [Unknown]
  - Cough [Unknown]
  - Tongue blistering [Unknown]
  - Asthenia [Unknown]
  - Paranasal sinus hypersecretion [Unknown]
  - Stomatitis [Unknown]
  - Decreased appetite [Unknown]
  - Rash [Unknown]
  - Fatigue [Unknown]
  - Tongue discolouration [Unknown]
  - Faeces soft [Unknown]

NARRATIVE: CASE EVENT DATE: 2019
